FAERS Safety Report 12248326 (Version 1)
Quarter: 2016Q2

REPORT INFORMATION
  Report Type: Spontaneous
  Country: US (occurrence: None)
  Receive Date: 20160407
  Receipt Date: 20160407
  Transmission Date: 20160815
  Serious: No
  Sender: FDA-Public Use
  Company Number: None

PATIENT
  Age: 49 Year
  Sex: Female
  Weight: 54.43 kg

DRUGS (1)
  1. CLINDAMYCIN HCL 150 MG CAPSULE, 150 MG AUROBIND [Suspect]
     Active Substance: CLINDAMYCIN HYDROCHLORIDE
     Indication: INFECTION
     Dosage: 12 CAPSULE(S) EVERY 6 HOURS TAKEN BY MOUTH
     Route: 048
     Dates: start: 20160330, end: 20160402

REACTIONS (2)
  - Drug dispensing error [None]
  - Product label confusion [None]

NARRATIVE: CASE EVENT DATE: 20160330
